FAERS Safety Report 9809407 (Version 1)
Quarter: 2014Q1

REPORT INFORMATION
  Report Type: Spontaneous
  Country: BR (occurrence: BR)
  Receive Date: 20140110
  Receipt Date: 20140110
  Transmission Date: 20141002
  Serious: Yes (Other)
  Sender: FDA-Public Use
  Company Number: BR-PFIZER INC-2014005972

PATIENT
  Age: 32 Year
  Sex: Female

DRUGS (4)
  1. ATORVASTATINA CALCICA TEUTO [Suspect]
     Indication: HYPERLIPIDAEMIA
     Dosage: STRENGTH 10 MG
     Dates: start: 2012
  2. CEFALEXIN [Suspect]
     Dosage: 1 TABLET OF 500 MG, 2X/DAY (EVERY 12 HOURS)
     Dates: start: 20131215, end: 20131219
  3. CEFALEXIN [Suspect]
     Dosage: 1 TABLET OF 500 MG, 2X/DAY (EVERY 12 HOURS)
     Dates: start: 20131215, end: 20131219
  4. SIBLIMA [Concomitant]
     Dosage: 1 TABLET OF AN UNSPECIFIED DOSE, DAILY
     Dates: start: 2011

REACTIONS (4)
  - Malignant melanoma [Unknown]
  - Erythema [Recovered/Resolved]
  - Skin disorder [Recovered/Resolved]
  - Hypersensitivity [Recovered/Resolved]
